FAERS Safety Report 20187234 (Version 1)
Quarter: 2021Q4

REPORT INFORMATION
  Report Type: Spontaneous
  Country: US (occurrence: None)
  Receive Date: 20211214
  Receipt Date: 20211214
  Transmission Date: 20220303
  Serious: Yes (Hospitalization)
  Sender: FDA-Public Use
  Company Number: None

PATIENT
  Age: 80 Year
  Sex: Female
  Weight: 74.7 kg

DRUGS (1)
  1. POMALYST [Suspect]
     Active Substance: POMALIDOMIDE
     Indication: Plasma cell myeloma
     Dosage: OTHER FREQUENCY : DAILY X21 DAYS;?
     Route: 048
     Dates: start: 20151101, end: 20211116

REACTIONS (2)
  - SARS-CoV-2 test positive [None]
  - Pneumonia [None]

NARRATIVE: CASE EVENT DATE: 20211116
